FAERS Safety Report 9161688 (Version 2)
Quarter: 2013Q1

REPORT INFORMATION
  Report Type: Spontaneous
  Country: IR (occurrence: IR)
  Receive Date: 20130314
  Receipt Date: 20130322
  Transmission Date: 20140127
  Serious: Yes (Hospitalization)
  Sender: FDA-Public Use
  Company Number: IR-009507513-1303IRN005115

PATIENT
  Age: 22 Year
  Sex: Female

DRUGS (3)
  1. THERAPY UNSPECIFIED [Suspect]
  2. GONADOTROPIN, CHORIONIC [Suspect]
     Indication: INFERTILITY FEMALE
  3. CLOMIPHENE CITRATE [Suspect]
     Indication: INFERTILITY FEMALE

REACTIONS (3)
  - Ovarian hyperstimulation syndrome [Recovering/Resolving]
  - Intracardiac thrombus [Recovering/Resolving]
  - Ascites [Recovering/Resolving]
